FAERS Safety Report 10067622 (Version 3)
Quarter: 2015Q1

REPORT INFORMATION
  Report Type: Report from Study
  Country: US (occurrence: US)
  Receive Date: 20140409
  Receipt Date: 20150310
  Transmission Date: 20150720
  Serious: No
  Sender: FDA-Public Use
  Company Number: US-ALEXION-A201401182

PATIENT

DRUGS (14)
  1. CALCIUM ACETATE. [Concomitant]
     Active Substance: CALCIUM ACETATE
     Indication: PRODUCT USED FOR UNKNOWN INDICATION
     Dosage: 1334 MG, BID
     Route: 065
     Dates: start: 20140101
  2. OXYCODONE [Concomitant]
     Active Substance: OXYCODONE
     Indication: PAIN
     Dosage: 5 MG, Q 3
     Route: 048
     Dates: start: 20140101
  3. FERROUS SULFATE [Concomitant]
     Active Substance: FERROUS SULFATE\FERROUS SULFATE, DRIED
     Indication: MINERAL SUPPLEMENTATION
     Dosage: 325 MG, BID
     Route: 048
     Dates: start: 20140101
  4. LORATADINE. [Concomitant]
     Active Substance: LORATADINE
     Indication: PRODUCT USED FOR UNKNOWN INDICATION
     Dosage: 10 MG, QD
     Route: 065
     Dates: start: 20140101
  5. SOLIRIS [Suspect]
     Active Substance: ECULIZUMAB
     Dosage: 1200 MG, Q2W
     Route: 042
  6. SOLIRIS [Suspect]
     Active Substance: ECULIZUMAB
     Indication: HAEMOLYTIC URAEMIC SYNDROME
     Dosage: 900 MG, QW
     Route: 042
     Dates: start: 20140307
  7. POLYETHYLENE GLYCOL [Concomitant]
     Active Substance: POLYETHYLENE GLYCOLS
     Indication: PRODUCT USED FOR UNKNOWN INDICATION
     Dosage: 17 G, AS DIRECTED
     Route: 048
     Dates: start: 20140101
  8. AMLODIPINE W/VALSARTAN [Concomitant]
     Active Substance: AMLODIPINE\VALSARTAN
     Indication: HYPERTENSION
     Dosage: UNK, QD
     Route: 065
     Dates: start: 20140101
  9. ONDANSETRON [Concomitant]
     Active Substance: ONDANSETRON
     Indication: PRODUCT USED FOR UNKNOWN INDICATION
     Dosage: 4 MG, PER 8 HOURS
     Route: 065
     Dates: start: 20140101
  10. FOLIC ACID. [Concomitant]
     Active Substance: FOLIC ACID
     Indication: PRODUCT USED FOR UNKNOWN INDICATION
     Dosage: 1 MG, QD
     Route: 065
     Dates: start: 20140101
  11. SOLIRIS [Suspect]
     Active Substance: ECULIZUMAB
     Dosage: UNK Q3W
     Route: 042
  12. SOLIRIS [Suspect]
     Active Substance: ECULIZUMAB
     Dosage: UNK, QMONTH
     Route: 042
     Dates: start: 201501
  13. METOPROLOL [Concomitant]
     Active Substance: METOPROLOL
     Indication: HYPERTENSION
     Dosage: 25 MG HALF TAB, QD
     Route: 065
     Dates: start: 20140101
  14. PREDNISONE. [Concomitant]
     Active Substance: PREDNISONE
     Indication: STEROID THERAPY
     Dosage: 1 MG, AS DIRECTED
     Route: 065
     Dates: start: 20140101

REACTIONS (4)
  - Headache [Not Recovered/Not Resolved]
  - Diarrhoea [Not Recovered/Not Resolved]
  - Nausea [Not Recovered/Not Resolved]
  - Inappropriate schedule of drug administration [Unknown]

NARRATIVE: CASE EVENT DATE: 201403
